FAERS Safety Report 10648656 (Version 1)
Quarter: 2014Q4

REPORT INFORMATION
  Report Type: Spontaneous
  Country: US (occurrence: None)
  Receive Date: 20141205
  Receipt Date: 20141205
  Transmission Date: 20150529
  Serious: No
  Sender: FDA-Public Use
  Company Number: None

PATIENT
  Age: 76 Year
  Sex: Male

DRUGS (11)
  1. POMALYST [Suspect]
     Active Substance: POMALIDOMIDE
     Indication: PLASMA CELL MYELOMA
     Dosage: 4 MG, 21 IN 21 D, PO
     Route: 048
     Dates: start: 201309, end: 20140922
  2. PRADAXA (DABIGATRAN ETEXILATE MESILATE) (UNKNOWN) [Concomitant]
  3. ACYCLOVIR (ACICLOVIR) (UNKNOWN) [Concomitant]
  4. CALCIUM (CALCIUM) (UNKNOWN) [Concomitant]
  5. METOPROLOL (METOPROLOL) (UNKNOWN) [Concomitant]
  6. ALFUZOSIN (ALFUZOSIN) (UNKNOWN) [Concomitant]
  7. DIGOXIN (DIGOXIN) (UNKNOWN) (DIGOXIN) [Concomitant]
     Active Substance: DIGOXIN
  8. PANTOPRAZOLE (PANTOPRAZOLE) (UNKNOWN) [Concomitant]
  9. ASPRIN [Concomitant]
     Active Substance: ASPIRIN
  10. CIPROFLOXACIN (CIPROFLOXACIN) (UNKNOWN) (CIPROFLOXACIN) [Concomitant]
     Active Substance: CIPROFLOXACIN
  11. VELCADE [Concomitant]
     Active Substance: BORTEZOMIB

REACTIONS (2)
  - Immune system disorder [None]
  - Bradycardia [None]

NARRATIVE: CASE EVENT DATE: 20130922
